FAERS Safety Report 5585089-9 (Version None)
Quarter: 2008Q1

REPORT INFORMATION
  Report Type: 
  Country: None (occurrence: None)
  Receive Date: 20080109
  Receipt Date: 20071213
  Transmission Date: 20080703
  Serious: No
  Sender: FDA-Public Use
  Company Number: US-BOEHRINGER INGELHEIM PHARMACEUTICALS, INC.-2007-BP-26227BP

PATIENT
  Sex: Male

DRUGS (2)
  1. SPIRIVA [Suspect]
     Indication: BRONCHITIS
     Route: 055
     Dates: start: 20071101, end: 20071201
  2. OIL OF ORGENO [Concomitant]

REACTIONS (3)
  - DRY MOUTH [None]
  - MOUTH HAEMORRHAGE [None]
  - STOMATITIS [None]
